FAERS Safety Report 7866808-5 (Version None)
Quarter: 2011Q4

REPORT INFORMATION
  Report Type: 
  Country: None (occurrence: None)
  Receive Date: 20111028
  Receipt Date: 20110818
  Transmission Date: 20120403
  Serious: No
  Sender: FDA-Public Use
  Company Number: US-GLAXOSMITHKLINE-A0942202A

PATIENT
  Age: 65 Year
  Sex: Female
  Weight: 69.5 kg

DRUGS (1)
  1. ADVAIR DISKUS 100/50 [Suspect]
     Indication: SWELLING
     Dates: start: 20110720, end: 20110801

REACTIONS (2)
  - HYPERSENSITIVITY [None]
  - SWELLING [None]
